FAERS Safety Report 7088961-6 (Version None)
Quarter: 2010Q4

REPORT INFORMATION
  Report Type: 
  Country: None (occurrence: None)
  Receive Date: 20101108
  Receipt Date: 20101026
  Transmission Date: 20110411
  Serious: Yes (Other)
  Sender: FDA-Public Use
  Company Number: US-US-EMD SERONO, INC.-7024705

PATIENT
  Sex: Female

DRUGS (1)
  1. REBIF [Suspect]
     Route: 058
     Dates: start: 20100326

REACTIONS (1)
  - AUTONOMIC NERVOUS SYSTEM IMBALANCE [None]
